FAERS Safety Report 9350520 (Version 3)
Quarter: 2013Q3

REPORT INFORMATION
  Report Type: Spontaneous
  Country: US (occurrence: US)
  Receive Date: 20130617
  Receipt Date: 20130819
  Transmission Date: 20140515
  Serious: No
  Sender: FDA-Public Use
  Company Number: US-PFIZER INC-2013181122

PATIENT
  Sex: Female

DRUGS (2)
  1. LYRICA [Suspect]
     Dosage: 75 MG, 3X/DAY
  2. LYRICA [Suspect]
     Dosage: UNK
     Dates: end: 201305

REACTIONS (2)
  - Middle insomnia [Unknown]
  - Poor quality sleep [Unknown]
